FAERS Safety Report 23919231 (Version 1)
Quarter: 2024Q2

REPORT INFORMATION
  Report Type: Spontaneous
  Country: US (occurrence: US)
  Receive Date: 20240530
  Receipt Date: 20240530
  Transmission Date: 20240715
  Serious: No
  Sender: FDA-Public Use
  Company Number: US-LEO Pharma-370706

PATIENT
  Age: 57 Year
  Sex: Female

DRUGS (1)
  1. ADBRY [Suspect]
     Active Substance: TRALOKINUMAB-LDRM
     Indication: Neurodermatitis
     Route: 058
     Dates: start: 202402

REACTIONS (2)
  - Product use in unapproved indication [Unknown]
  - Skin exfoliation [Unknown]
